FAERS Safety Report 25288330 (Version 1)
Quarter: 2025Q2

REPORT INFORMATION
  Report Type: Spontaneous
  Country: US (occurrence: None)
  Receive Date: 20250509
  Receipt Date: 20250509
  Transmission Date: 20250716
  Serious: Yes (Hospitalization)
  Sender: FDA-CTU
  Company Number: None

PATIENT
  Age: 63 Year
  Sex: Male
  Weight: 119.2 kg

DRUGS (6)
  1. LEXISCAN [Suspect]
     Active Substance: REGADENOSON
     Indication: Cardiac stress test
     Route: 042
     Dates: start: 20250407, end: 20250407
  2. metoprolol SUCCinate (TOPROL-XL) 25 MG XL tablet	TAKE 1 TABLET BY MOU [Concomitant]
  3. finasteride (PROSCAR) 5 mg tablet	Take 1 tablet (5 mg total) by mouth [Concomitant]
  4. atorvastatin (LIPITOR) 10 MG tablet [Concomitant]
  5. buPROPion (WELLBUTRIN XL) 150 MG XL tablet [Concomitant]
  6. omeprazole (PRILOSEC) 20 MG DR capsule [Concomitant]

REACTIONS (6)
  - Dyspnoea [None]
  - Chest pain [None]
  - Nausea [None]
  - Unresponsive to stimuli [None]
  - Blood pressure increased [None]
  - Heart rate increased [None]

NARRATIVE: CASE EVENT DATE: 20250407
